FAERS Safety Report 18497327 (Version 1)
Quarter: 2020Q4

REPORT INFORMATION
  Report Type: Spontaneous
  Country: US (occurrence: US)
  Receive Date: 20201112
  Receipt Date: 20201112
  Transmission Date: 20210114
  Serious: Yes (Death, Other)
  Sender: FDA-Public Use
  Company Number: US-PURDUE-USA-2020-0175486

PATIENT
  Sex: Female

DRUGS (1)
  1. OXYCONTIN [Suspect]
     Active Substance: OXYCODONE HYDROCHLORIDE
     Indication: PRODUCT USED FOR UNKNOWN INDICATION
     Dosage: UNK
     Route: 048

REACTIONS (6)
  - Diabetes mellitus [Fatal]
  - Myocardial infarction [Fatal]
  - Abdominal pain upper [Unknown]
  - Hypertension [Fatal]
  - Anaemia [Fatal]
  - Drug dependence [Unknown]

NARRATIVE: CASE EVENT DATE: 20190808
